FAERS Safety Report 8423317-2 (Version None)
Quarter: 2012Q2

REPORT INFORMATION
  Report Type: 
  Country: None (occurrence: None)
  Receive Date: 20120608
  Receipt Date: 20120530
  Transmission Date: 20120825
  Serious: Yes (Hospitalization, Other)
  Sender: FDA-Public Use
  Company Number: US-ACTELION-A-US2011-53118

PATIENT

DRUGS (13)
  1. CELEXA [Concomitant]
  2. OXYGEN [Concomitant]
  3. COREG [Concomitant]
  4. TRACLEER [Suspect]
     Indication: PULMONARY ARTERIAL HYPERTENSION
     Dosage: 125 MG, BID
     Route: 048
     Dates: start: 20110216
  5. ADCIRCA [Concomitant]
  6. TRACLEER [Suspect]
     Dosage: 125 MG, BID
     Route: 048
     Dates: start: 20110701
  7. LOVENOX [Concomitant]
  8. REVATIO [Concomitant]
  9. LASIX [Concomitant]
  10. FLEXERIL [Concomitant]
  11. ATIVAN [Concomitant]
  12. COUMADIN [Concomitant]
  13. ASPIRIN [Concomitant]

REACTIONS (23)
  - IRON DEFICIENCY ANAEMIA [None]
  - PACKED RED BLOOD CELL TRANSFUSION [None]
  - FALL [None]
  - MEAN CELL VOLUME DECREASED [None]
  - PLEURAL EFFUSION [None]
  - NEUTROPENIA [None]
  - DYSPNOEA EXERTIONAL [None]
  - WHITE BLOOD CELL COUNT DECREASED [None]
  - HAEMOLYTIC ANAEMIA [None]
  - ASTHENIA [None]
  - LOSS OF CONSCIOUSNESS [None]
  - CONDITION AGGRAVATED [None]
  - BLOOD LACTATE DEHYDROGENASE INCREASED [None]
  - CARDIAC OPERATION [None]
  - GASTROINTESTINAL HAEMORRHAGE [None]
  - ASPIRATION PLEURAL CAVITY [None]
  - EROSIVE OESOPHAGITIS [None]
  - DIZZINESS [None]
  - HAEMATOCRIT DECREASED [None]
  - HEART VALVE REPLACEMENT [None]
  - CARDIAC PACEMAKER INSERTION [None]
  - FATIGUE [None]
  - HAEMOGLOBIN DECREASED [None]
